FAERS Safety Report 15311456 (Version 1)
Quarter: 2018Q3

REPORT INFORMATION
  Report Type: Spontaneous
  Country: US (occurrence: US)
  Receive Date: 20180814
  Receipt Date: 20180814
  Transmission Date: 20181010
  Serious: Yes (Hospitalization)
  Sender: FDA-Public Use
  Company Number: None

PATIENT
  Age: 58 Year
  Sex: Male

DRUGS (1)
  1. SENSIPAR [Suspect]
     Active Substance: CINACALCET HYDROCHLORIDE
     Indication: HYPERPARATHYROIDISM SECONDARY
     Dosage: ?          OTHER FREQUENCY:6 DAYS PER WEEK;?
     Route: 048
     Dates: start: 20180814

REACTIONS (1)
  - Nephrectomy [None]

NARRATIVE: CASE EVENT DATE: 20180713
